FAERS Safety Report 10196848 (Version 1)
Quarter: 2014Q2

REPORT INFORMATION
  Report Type: Spontaneous
  Country: FR (occurrence: FR)
  Receive Date: 20140527
  Receipt Date: 20140527
  Transmission Date: 20141212
  Serious: Yes (Life-Threatening, Other)
  Sender: FDA-Public Use
  Company Number: FR-TAKEDA-2014TUS004130

PATIENT
  Sex: 0

DRUGS (1)
  1. COLCHICINE [Suspect]
     Dosage: UNK

REACTIONS (4)
  - Multi-organ failure [Recovering/Resolving]
  - Cardiogenic shock [Recovering/Resolving]
  - Overdose [Recovering/Resolving]
  - Toxicity to various agents [Recovering/Resolving]
